FAERS Safety Report 4504446-2 (Version None)
Quarter: 2004Q4

REPORT INFORMATION
  Report Type: 
  Country: None (occurrence: None)
  Receive Date: 20041117
  Receipt Date: 20041117
  Transmission Date: 20050328
  Serious: No
  Sender: FDA-Public Use
  Company Number: None

PATIENT
  Age: 83 Year
  Sex: Female
  Weight: 95.709 kg

DRUGS (7)
  1. PHENYTOIN ERC 100 MG MYLAN [Suspect]
     Indication: COMPLEX PARTIAL SEIZURES
     Dosage: 100 MG ALT W/200 MG AM 200 MG Q HS
     Dates: start: 20020216
  2. ASPIRIN [Concomitant]
  3. NAPROXEN [Concomitant]
  4. NORVASC [Concomitant]
  5. M.V.I. [Concomitant]
  6. NEURONTIN [Concomitant]
  7. CALCIUM [Concomitant]

REACTIONS (1)
  - DRUG LEVEL DECREASED [None]
